FAERS Safety Report 25497423 (Version 1)
Quarter: 2025Q3

REPORT INFORMATION
  Report Type: Spontaneous
  Country: EU (occurrence: EU)
  Receive Date: 20250701
  Receipt Date: 20250701
  Transmission Date: 20251020
  Serious: No
  Sender: ALKEM
  Company Number: EU-ALKEM LABORATORIES LIMITED-US-ALKEM-2025-04551

PATIENT
  Age: 29 Year
  Sex: Female
  Weight: 75 kg

DRUGS (5)
  1. CLOPIDOGREL [Suspect]
     Active Substance: CLOPIDOGREL BISULFATE
     Indication: Ischaemic stroke
     Dosage: 75 MILLIGRAM, QD (DAILY) (FILM COATED TABLET) ( AFTER A MEAL ON THE FIRST SAMPLING DAY AND BEFORE TH
     Route: 065
  2. ASPIRIN [Suspect]
     Active Substance: ASPIRIN
     Indication: Ischaemic stroke
     Dosage: 1 DOSAGE FORM, QD (GASTRO-RESISTANT TABLETS)
     Route: 065
  3. CHOLECALCIFEROL [Suspect]
     Active Substance: CHOLECALCIFEROL
     Indication: Vitamin supplementation
     Dosage: 1 DOSAGE FORM, ONCE WEEKLY (CAPSULE)
     Route: 065
  4. ACETAMINOPHEN [Suspect]
     Active Substance: ACETAMINOPHEN
     Indication: Product used for unknown indication
     Route: 065
  5. Compleet zwanger plus omega-3 visolie Davitamon [Concomitant]
     Indication: Vitamin supplementation
     Route: 065

REACTIONS (2)
  - Contusion [Unknown]
  - Maternal exposure during breast feeding [Unknown]
